FAERS Safety Report 7026496-7 (Version None)
Quarter: 2010Q4

REPORT INFORMATION
  Report Type: 
  Country: None (occurrence: None)
  Receive Date: 20101004
  Receipt Date: 20100406
  Transmission Date: 20110411
  Serious: No
  Sender: FDA-Public Use
  Company Number: US-PFIZER INC-2010022361

PATIENT
  Sex: Female
  Weight: 63.5 kg

DRUGS (3)
  1. DEPO-ESTRADIOL [Suspect]
     Indication: HORMONE REPLACEMENT THERAPY
     Dosage: 2 CC, MONTHLY
     Route: 030
  2. XANAX [Concomitant]
     Indication: ANXIETY
     Dosage: 1 MG, UNK
     Route: 048
  3. METOPROLOL [Concomitant]
     Indication: HYPERTENSION
     Dosage: 50 MG, 2X/DAY
     Route: 048

REACTIONS (4)
  - ALOPECIA [None]
  - DRUG INEFFECTIVE [None]
  - HEADACHE [None]
  - NIGHT SWEATS [None]
